FAERS Safety Report 22595577 (Version 3)
Quarter: 2023Q4

REPORT INFORMATION
  Report Type: Spontaneous
  Country: US (occurrence: US)
  Receive Date: 20230613
  Receipt Date: 20231026
  Transmission Date: 20240110
  Serious: No
  Sender: FDA-Public Use
  Company Number: US-SA-SAC20230613000132

PATIENT
  Sex: Female

DRUGS (5)
  1. DUPIXENT [Suspect]
     Active Substance: DUPILUMAB
     Indication: Dermatitis atopic
     Dosage: 300 MG, QOW
     Route: 058
     Dates: start: 20210514
  2. SINGULAIR [Concomitant]
     Active Substance: MONTELUKAST SODIUM
     Dosage: UNK
  3. VITAMIN B12 [Concomitant]
     Active Substance: CYANOCOBALAMIN
     Dosage: UNK
  4. ZYRTEC [Concomitant]
     Active Substance: CETIRIZINE HYDROCHLORIDE
     Dosage: UNK
  5. LEVONORGESTREL [Concomitant]
     Active Substance: LEVONORGESTREL
     Dosage: 0.5/35

REACTIONS (6)
  - Infection [Unknown]
  - Impaired quality of life [Unknown]
  - Eye irritation [Unknown]
  - Injection site reaction [Unknown]
  - Therapeutic response decreased [Unknown]
  - Product dose omission in error [Unknown]
